FAERS Safety Report 8536399 (Version 2)
Quarter: 2012Q4

REPORT INFORMATION
  Report Type: 
  Country: BR (occurrence: BR)
  Receive Date: 20120430
  Receipt Date: 20121019
  Transmission Date: 20130627
  Serious: Yes (Death, Hospitalization)
  Sender: FDA-Public Use
  Company Number: BR-ASTRAZENECA-2012SE26873

PATIENT
  Age: 81 Year
  Sex: Female

DRUGS (2)
  1. SYMBICORT TURBUHALER [Suspect]
     Indication: BRONCHITIS
     Dosage: 160/4.9 MCG OD
     Route: 055
     Dates: end: 201204
  2. SYMBICORT TURBUHALER [Suspect]
     Indication: BRONCHITIS
     Dosage: 320/9 MCG, BID BUT PATIENT TAKING OD
     Route: 055
     Dates: start: 201204

REACTIONS (4)
  - Myocardial infarction [Fatal]
  - Dyspnoea [Not Recovered/Not Resolved]
  - Wheezing [Not Recovered/Not Resolved]
  - Intentional drug misuse [Not Recovered/Not Resolved]
